FAERS Safety Report 7441937-9 (Version None)
Quarter: 2011Q2

REPORT INFORMATION
  Report Type: 
  Country: None (occurrence: None)
  Receive Date: 20110428
  Receipt Date: 20100426
  Transmission Date: 20111010
  Serious: Yes (Other)
  Sender: FDA-Public Use
  Company Number: US-ASTRAZENECA-2010SE18597

PATIENT
  Sex: Female

DRUGS (4)
  1. AMERGE [Suspect]
     Route: 048
  2. ZOMIG [Suspect]
     Route: 048
  3. SUMATRIPTAN SUCCINATE [Suspect]
  4. IMITREX [Suspect]
     Route: 058

REACTIONS (2)
  - ANAPHYLACTIC SHOCK [None]
  - HYPERSENSITIVITY [None]
